FAERS Safety Report 5589321-7 (Version None)
Quarter: 2008Q1

REPORT INFORMATION
  Report Type: 
  Country: None (occurrence: None)
  Receive Date: 20080109
  Receipt Date: 20071222
  Transmission Date: 20080703
  Serious: Yes (Other)
  Sender: FDA-Public Use
  Company Number: ENT 2007-0175

PATIENT
  Age: 62 Year
  Sex: Male

DRUGS (4)
  1. COMTAN [Suspect]
     Indication: PARKINSON'S DISEASE
     Dosage: 300 MG
     Route: 048
     Dates: start: 20070529, end: 20070530
  2. DOMIN (TALIPEXOLE) [Concomitant]
  3. MYSLEE (ZOLPIDEM) [Concomitant]
  4. MADOPAR [Concomitant]

REACTIONS (4)
  - BLOOD PRESSURE INCREASED [None]
  - CHILLS [None]
  - MUSCULOSKELETAL STIFFNESS [None]
  - TREMOR [None]
